FAERS Safety Report 6676580-2 (Version None)
Quarter: 2010Q2

REPORT INFORMATION
  Report Type: 
  Country: None (occurrence: None)
  Receive Date: 20100412
  Receipt Date: 20100402
  Transmission Date: 20101027
  Serious: Yes (Other)
  Sender: FDA-Public Use
  Company Number: BE-ABBOTT-10P-013-0636207-00

PATIENT
  Age: 14 Year
  Sex: Female

DRUGS (2)
  1. BICLAR [Suspect]
     Indication: RESPIRATORY TRACT INFECTION
     Route: 048
     Dates: start: 20080101, end: 20080101
  2. MINOCYCLIN [Suspect]
     Indication: ACNE
     Dates: start: 20100101, end: 20100101

REACTIONS (1)
  - DELIRIUM [None]
